FAERS Safety Report 4415938-9 (Version None)
Quarter: 2004Q3

REPORT INFORMATION
  Report Type: 
  Country: None (occurrence: None)
  Receive Date: 20040805
  Receipt Date: 20040625
  Transmission Date: 20050211
  Serious: No
  Sender: FDA-Public Use
  Company Number: US-GLAXOSMITHKLINE-A0516111A

PATIENT
  Age: 63 Year
  Sex: Female

DRUGS (6)
  1. AVANDAMET [Suspect]
     Dosage: 2MG TWICE PER DAY
     Route: 048
     Dates: start: 20040623
  2. LIPITOR [Concomitant]
  3. GLYBURIDE [Concomitant]
  4. TOPROL-XL [Concomitant]
  5. FUROSEMIDE [Concomitant]
  6. STELAZINE [Concomitant]

REACTIONS (1)
  - DIARRHOEA [None]
